FAERS Safety Report 12521263 (Version 1)
Quarter: 2016Q3

REPORT INFORMATION
  Report Type: Spontaneous
  Country: SG (occurrence: SG)
  Receive Date: 20160701
  Receipt Date: 20160701
  Transmission Date: 20161109
  Serious: Yes (Other)
  Sender: FDA-Public Use
  Company Number: SG-009507513-1606SGP012727

PATIENT
  Age: 87 Year
  Sex: Male

DRUGS (1)
  1. PEMBROLIZUMAB. [Suspect]
     Active Substance: PEMBROLIZUMAB
     Indication: HODGKIN^S DISEASE RECURRENT
     Dosage: 2 MG/KG, Q3W, CYCLICAL

REACTIONS (2)
  - Product use issue [Unknown]
  - Pulmonary tuberculosis [Unknown]
